FAERS Safety Report 19250170 (Version 1)
Quarter: 2021Q2

REPORT INFORMATION
  Report Type: Spontaneous
  Country: ZA (occurrence: ZA)
  Receive Date: 20210512
  Receipt Date: 20210512
  Transmission Date: 20210717
  Serious: Yes (Life-Threatening, Hospitalization)
  Sender: FDA-Public Use
  Company Number: ZA-MYLANLABS-2021M1027849

PATIENT
  Age: 61 Year
  Sex: Male

DRUGS (8)
  1. IRINOTECAN [Suspect]
     Active Substance: IRINOTECAN
     Indication: COLORECTAL CANCER
     Dosage: 200 MILLIGRAM/SQ. METER, CYCLE PART OF IROX REGIMEN; SCHEDULED FOR 12 CYCLES
     Route: 042
  2. OXALIPLATIN. [Suspect]
     Active Substance: OXALIPLATIN
     Dosage: 130 MG/M2, CYCLE SINGLE DOSE; 3 ADDITIONAL CYCLES (FULL DOSES) WERE GIVEN AT 2?WEEKLY INTERVALS
     Route: 065
  3. BEVACIZUMAB. [Suspect]
     Active Substance: BEVACIZUMAB
     Dosage: 7.5 MILLIGRAM/KILOGRAM, CYCLE SCHEDULED FOR 12 CYCLES
     Route: 065
  4. OXALIPLATIN. [Suspect]
     Active Substance: OXALIPLATIN
     Indication: COLORECTAL CANCER
     Dosage: PART OF FOLFOX6 REGIMEN
     Route: 065
  5. FLUOROURACIL. [Suspect]
     Active Substance: FLUOROURACIL
     Indication: COLORECTAL CANCER
     Dosage: PART OF FOLFOX6 REGIMEN
     Route: 065
  6. FOLINIC ACID [Suspect]
     Active Substance: LEUCOVORIN
     Indication: COLORECTAL CANCER
     Dosage: PART OF FOLFOX6 REGIMEN
     Route: 065
  7. OXALIPLATIN. [Suspect]
     Active Substance: OXALIPLATIN
     Dosage: 85 MILLIGRAM/SQ. METER, CYCLE PART OF IROX REGIMEN; SCHEDULED FOR 12 CYCLES
     Route: 065
  8. BEVACIZUMAB. [Suspect]
     Active Substance: BEVACIZUMAB
     Indication: COLORECTAL CANCER
     Dosage: UNK UNK, CYCLE
     Route: 065

REACTIONS (22)
  - Neutropenic colitis [Unknown]
  - Portal hypertension [Recovered/Resolved]
  - Malnutrition [Unknown]
  - Pleural effusion [Unknown]
  - Fibrosis [Recovered/Resolved]
  - Pneumatosis intestinalis [Unknown]
  - Alopecia [Unknown]
  - Rectal perforation [Recovered/Resolved]
  - Neutropenia [Unknown]
  - Diarrhoea [Unknown]
  - Encephalopathy [Unknown]
  - Pancytopenia [Unknown]
  - Liver disorder [Recovered/Resolved]
  - Psychomotor retardation [Unknown]
  - Acute hepatic failure [Recovered/Resolved]
  - Ataxia [Unknown]
  - Resting tremor [Unknown]
  - Thrombocytopenia [Recovered/Resolved]
  - Neuropathy peripheral [Unknown]
  - Neutropenic sepsis [Recovered/Resolved]
  - Mucosal inflammation [Unknown]
  - Myelosuppression [Recovered/Resolved]
